FAERS Safety Report 6408623-5 (Version None)
Quarter: 2009Q4

REPORT INFORMATION
  Report Type: 
  Country: None (occurrence: None)
  Receive Date: 20091021
  Receipt Date: 20091011
  Transmission Date: 20100525
  Serious: Yes (Other)
  Sender: FDA-Public Use
  Company Number: DE-PFIZER INC-2009285310

PATIENT
  Age: 48 Year

DRUGS (1)
  1. ATARAX [Suspect]
     Dosage: 50 DF, SINGLE
     Dates: start: 20091011, end: 20091011

REACTIONS (3)
  - ELECTROCARDIOGRAM QT PROLONGED [None]
  - OVERDOSE [None]
  - SUICIDE ATTEMPT [None]
